FAERS Safety Report 25095853 (Version 1)
Quarter: 2025Q1

REPORT INFORMATION
  Report Type: Spontaneous
  Country: TH (occurrence: TH)
  Receive Date: 20250319
  Receipt Date: 20250319
  Transmission Date: 20250408
  Serious: Yes (Death, Hospitalization, Other)
  Sender: MERCK SHARP & DOHME LLC
  Company Number: TH-009507513-2265425

PATIENT
  Age: 85 Year
  Sex: Male

DRUGS (3)
  1. PEMBROLIZUMAB [Suspect]
     Active Substance: PEMBROLIZUMAB
     Indication: Non-small cell lung cancer
     Dates: start: 202206, end: 202403
  2. PEMETREXED [Suspect]
     Active Substance: PEMETREXED
     Indication: Non-small cell lung cancer
     Dates: start: 202206, end: 202403
  3. CARBOPLATIN [Suspect]
     Active Substance: CARBOPLATIN
     Indication: Non-small cell lung cancer
     Dates: start: 202206

REACTIONS (6)
  - Death [Fatal]
  - Pulmonary embolism [Unknown]
  - Pneumonia [Unknown]
  - Septic shock [Unknown]
  - Malignant neoplasm progression [Unknown]
  - Colitis [Unknown]

NARRATIVE: CASE EVENT DATE: 20230301
